FAERS Safety Report 6577317-8 (Version None)
Quarter: 2010Q1

REPORT INFORMATION
  Report Type: 
  Country: None (occurrence: None)
  Receive Date: 20100210
  Receipt Date: 20100201
  Transmission Date: 20100710
  Serious: Yes (Other)
  Sender: FDA-Public Use
  Company Number: BR-ABBOTT-10P-020-0623707-00

PATIENT
  Sex: Female
  Weight: 45 kg

DRUGS (8)
  1. HUMIRA [Suspect]
     Indication: RHEUMATOID ARTHRITIS
     Route: 058
     Dates: start: 20071028, end: 20081210
  2. HUMIRA [Suspect]
     Route: 058
  3. AMITRIPTYLINE HCL [Concomitant]
     Indication: PAIN
     Route: 048
  4. PREDNISONE [Concomitant]
     Indication: PAIN
     Route: 048
  5. NIMESULIDE [Concomitant]
     Indication: PAIN
     Route: 048
  6. FOLIC ACID [Concomitant]
     Indication: RHEUMATOID ARTHRITIS
     Route: 048
  7. RANITIDINE [Concomitant]
     Indication: GASTRIC DISORDER
     Route: 048
  8. METHOTREXATE [Concomitant]
     Indication: PAIN
     Route: 048

REACTIONS (1)
  - FOOT DEFORMITY [None]
